FAERS Safety Report 20461549 (Version 1)
Quarter: 2022Q1

REPORT INFORMATION
  Report Type: Spontaneous
  Country: NL (occurrence: NL)
  Receive Date: 20220211
  Receipt Date: 20220211
  Transmission Date: 20220423
  Serious: Yes (Life-Threatening, Disabling)
  Sender: FDA-Public Use
  Company Number: None

PATIENT
  Age: 22 Year
  Sex: Male
  Weight: 101 kg

DRUGS (2)
  1. QUETIAPINE [Suspect]
     Active Substance: QUETIAPINE
     Indication: Hallucination, auditory
     Dosage: 3 DOSAGE FORMS DAILY; 3DF, ,QUETIAPINE TABLET FO  25MG / BRAND NAME NOT SPECIFIED,THERAPY END DATE:
     Dates: start: 2020
  2. CITALOPRAM [Concomitant]
     Active Substance: CITALOPRAM HYDROBROMIDE
     Dosage: CITALOPRAM TABLET OMHULD 20MG / BRAND NAME NOT SPECIFIED, 20 MG,THERAPY START DATE :ASKU, THERAPY EN

REACTIONS (2)
  - Symptom recurrence [Not Recovered/Not Resolved]
  - Syncope [Not Recovered/Not Resolved]

NARRATIVE: CASE EVENT DATE: 20210706
